FAERS Safety Report 16608862 (Version 3)
Quarter: 2019Q4

REPORT INFORMATION
  Report Type: Spontaneous
  Country: US (occurrence: US)
  Receive Date: 20190722
  Receipt Date: 20191001
  Transmission Date: 20200122
  Serious: No
  Sender: FDA-Public Use
  Company Number: US-PFIZER INC-2019309454

PATIENT
  Age: 79 Year
  Sex: Female
  Weight: 63.39 kg

DRUGS (1)
  1. METHOTREXATE SODIUM. [Suspect]
     Active Substance: METHOTREXATE SODIUM
     Indication: ARTHRITIS
     Dosage: 10 MG, 1X/DAY

REACTIONS (7)
  - Mouth ulceration [Unknown]
  - Oral pain [Unknown]
  - Pain in extremity [Recovering/Resolving]
  - Renal disorder [Unknown]
  - Stomatitis [Recovered/Resolved]
  - Off label use [Unknown]
  - Gait disturbance [Recovering/Resolving]

NARRATIVE: CASE EVENT DATE: 201803
